FAERS Safety Report 9936995 (Version 1)
Quarter: 2014Q1

REPORT INFORMATION
  Report Type: Spontaneous
  Country: US (occurrence: None)
  Receive Date: 20140115
  Receipt Date: 20140115
  Transmission Date: 20141002
  Serious: No
  Sender: FDA-Public Use
  Company Number: 2013US002516

PATIENT
  Age: 69 Year
  Sex: Female
  Weight: 44 kg

DRUGS (1)
  1. ICLUSIG [Suspect]
     Indication: CHRONIC MYELOID LEUKAEMIA
     Route: 048
     Dates: start: 20130819

REACTIONS (3)
  - Aphonia [None]
  - Dry skin [None]
  - Rash erythematous [None]
